FAERS Safety Report 12556953 (Version 1)
Quarter: 2016Q3

REPORT INFORMATION
  Report Type: Spontaneous
  Country: US (occurrence: US)
  Receive Date: 20160714
  Receipt Date: 20160714
  Transmission Date: 20161109
  Serious: Yes (Other)
  Sender: FDA-Public Use
  Company Number: US-FRESENIUS KABI-FK201604328

PATIENT
  Age: 28 Week

DRUGS (4)
  1. DEXAMETHASONE INJECTION (MANUFACTURER UNKNOWN) [Suspect]
     Active Substance: DEXAMETHASONE
     Route: 064
  2. DEXAMETHASONE INJECTION (MANUFACTURER UNKNOWN) [Suspect]
     Active Substance: DEXAMETHASONE
     Indication: FOETAL CARDIAC DISORDER
     Route: 064
  3. DEXAMETHASONE INJECTION (MANUFACTURER UNKNOWN) [Suspect]
     Active Substance: DEXAMETHASONE
     Route: 064
  4. FLECAINIDE [Concomitant]
     Active Substance: FLECAINIDE
     Indication: ARRHYTHMIA
     Route: 064

REACTIONS (5)
  - Foetal cardiac disorder [Recovered/Resolved]
  - Respiratory distress [Recovered/Resolved]
  - Ductus arteriosus stenosis foetal [Recovered/Resolved]
  - Maternal drugs affecting foetus [Recovered/Resolved]
  - Foetal exposure timing unspecified [Recovered/Resolved]
